FAERS Safety Report 7998605-4 (Version None)
Quarter: 2011Q4

REPORT INFORMATION
  Report Type: 
  Country: None (occurrence: None)
  Receive Date: 20111221
  Receipt Date: 20111216
  Transmission Date: 20120403
  Serious: Yes (Death, Other)
  Sender: FDA-Public Use
  Company Number: CA-CELGENEUS-028-C5013-11103530

PATIENT
  Sex: Male
  Weight: 73.8 kg

DRUGS (13)
  1. KEFLEX [Concomitant]
     Indication: CELLULITIS
     Dosage: 300 MILLIGRAM
     Route: 048
     Dates: start: 20111013, end: 20111128
  2. NEUPOGEN [Concomitant]
     Dosage: 300 MICROGRAM
     Route: 058
     Dates: start: 20111003, end: 20111007
  3. THALIDOMIDE [Suspect]
     Indication: MULTIPLE MYELOMA
     Dosage: 200 MILLIGRAM
     Route: 048
     Dates: start: 20101112
  4. FRAGMIN [Concomitant]
     Indication: THROMBOSIS
     Dosage: 12.5 IU (INTERNATIONAL UNIT)
     Route: 058
     Dates: start: 20111014, end: 20111128
  5. AVODART [Concomitant]
     Dosage: .5 MILLIGRAM
     Route: 048
     Dates: start: 20080101, end: 20111128
  6. MELPHALAN HYDROCHLORIDE [Suspect]
     Indication: MULTIPLE MYELOMA
     Dosage: 8 MILLIGRAM
     Route: 065
     Dates: start: 20101112
  7. PREDNISONE [Suspect]
     Dosage: 150 MILLIGRAM
     Route: 065
     Dates: start: 20110902, end: 20110905
  8. TAMSULOSIN HCL [Concomitant]
     Dosage: .4 MILLIGRAM
     Route: 048
     Dates: start: 20070101, end: 20111128
  9. THALIDOMIDE [Suspect]
     Dosage: 200 MILLIGRAM
     Route: 048
     Dates: start: 20110902, end: 20110930
  10. HYDROMORPHONE HCL [Concomitant]
     Indication: PAIN
     Dosage: 2 MILLIGRAM
     Route: 048
     Dates: start: 20110506, end: 20111128
  11. CODEINE ELIXIR [Concomitant]
     Indication: COUGH
     Route: 048
     Dates: start: 20111021, end: 20111128
  12. MELPHALAN HYDROCHLORIDE [Suspect]
     Dosage: 2 MILLIGRAM
     Route: 065
     Dates: start: 20110902, end: 20110905
  13. PREDNISONE [Suspect]
     Indication: MULTIPLE MYELOMA
     Dosage: 140 MILLIGRAM
     Route: 065
     Dates: start: 20101112

REACTIONS (1)
  - LUNG CANCER METASTATIC [None]
